FAERS Safety Report 11968315 (Version 1)
Quarter: 2016Q1

REPORT INFORMATION
  Report Type: Spontaneous
  Country: FR (occurrence: FR)
  Receive Date: 20160128
  Receipt Date: 20160128
  Transmission Date: 20160526
  Serious: Yes (Other)
  Sender: FDA-Public Use
  Company Number: FR-UCBSA-2016002371

PATIENT
  Age: 57 Year
  Sex: Male

DRUGS (1)
  1. VIMPAT [Suspect]
     Active Substance: LACOSAMIDE
     Indication: PRODUCT USED FOR UNKNOWN INDICATION
     Dosage: UNK
     Dates: start: 201411

REACTIONS (6)
  - Vitreous floaters [Unknown]
  - Drug dependence [Unknown]
  - Tinnitus [Unknown]
  - Insomnia [Unknown]
  - Vertigo [Unknown]
  - Constipation [Unknown]

NARRATIVE: CASE EVENT DATE: 201411
